FAERS Safety Report 8102007 (Version 3)
Quarter: 2013Q3

REPORT INFORMATION
  Report Type: Spontaneous
  Country: US (occurrence: US)
  Receive Date: 20110823
  Receipt Date: 20130716
  Transmission Date: 20140515
  Serious: Yes (Other)
  Sender: FDA-Public Use
  Company Number: US-ROCHE-778832

PATIENT
  Age: 22 Year
  Sex: Male
  Weight: 68 kg

DRUGS (4)
  1. ACCUTANE [Suspect]
     Indication: ACNE
     Dosage: 2 AFTER SUPPER
     Route: 048
     Dates: start: 19971105, end: 19980204
  2. ACCUTANE [Suspect]
     Route: 048
     Dates: start: 19980211, end: 19980227
  3. ACCUTANE [Suspect]
     Route: 048
     Dates: start: 19980318, end: 19980429
  4. AMPICILLINE [Concomitant]
     Route: 065
     Dates: start: 19980101, end: 19980107

REACTIONS (16)
  - Crohn^s disease [Unknown]
  - Colitis ulcerative [Unknown]
  - Inflammatory bowel disease [Unknown]
  - Irritable bowel syndrome [Unknown]
  - Depression [Unknown]
  - Haemorrhoids [Unknown]
  - Gastrointestinal haemorrhage [Unknown]
  - Colitis ischaemic [Unknown]
  - Intestinal haemorrhage [Unknown]
  - Epistaxis [Unknown]
  - Dry skin [Unknown]
  - Chapped lips [Unknown]
  - Blood alkaline phosphatase increased [Unknown]
  - Blood triglycerides increased [Unknown]
  - Aspartate aminotransferase increased [Unknown]
  - Alanine aminotransferase increased [Unknown]
